FAERS Safety Report 9359319 (Version 1)
Quarter: 2013Q2

REPORT INFORMATION
  Report Type: Spontaneous
  Country: SE (occurrence: SE)
  Receive Date: 20130620
  Receipt Date: 20130620
  Transmission Date: 20140414
  Serious: Yes (Hospitalization, Other)
  Sender: FDA-Public Use
  Company Number: PHHY2013SE062087

PATIENT
  Age: 66 Year
  Sex: Male

DRUGS (1)
  1. METFORMIN [Suspect]
     Dosage: 1000 MG, TID

REACTIONS (16)
  - Shock [Recovering/Resolving]
  - Dyspnoea [Recovering/Resolving]
  - Back pain [Recovering/Resolving]
  - Fatigue [Recovering/Resolving]
  - Blood pressure decreased [Recovering/Resolving]
  - Loss of consciousness [Recovering/Resolving]
  - Vascular resistance systemic decreased [Recovering/Resolving]
  - Respiratory failure [Recovering/Resolving]
  - Oliguria [Recovering/Resolving]
  - Hypertension [Recovering/Resolving]
  - Confusional state [Recovered/Resolved]
  - Toxicity to various agents [Unknown]
  - Blood lactic acid increased [Recovering/Resolving]
  - Vasodilatation [Recovering/Resolving]
  - Vomiting [Recovering/Resolving]
  - Nausea [Recovering/Resolving]
